FAERS Safety Report 24651126 (Version 4)
Quarter: 2025Q4

REPORT INFORMATION
  Report Type: Spontaneous
  Country: EU (occurrence: EU)
  Receive Date: 20241122
  Receipt Date: 20251218
  Transmission Date: 20260117
  Serious: Yes (Other)
  Sender: AUROBINDO
  Company Number: EU-002147023-NVSC2024PL217252

PATIENT
  Age: 58 Year
  Sex: Female

DRUGS (8)
  1. FULVESTRANT [Suspect]
     Active Substance: FULVESTRANT
     Indication: Breast cancer
     Dosage: UNK
     Route: 065
  2. DAPAGLIFLOZIN [Suspect]
     Active Substance: DAPAGLIFLOZIN
     Indication: Diabetes mellitus
     Dosage: 10 MILLIGRAM, ONCE A DAY
     Route: 065
     Dates: start: 2023
  3. ALPELISIB [Suspect]
     Active Substance: ALPELISIB
     Indication: Breast cancer
     Dosage: 300 MILLIGRAM, ONCE A DAY
     Route: 065
     Dates: start: 202303
  4. METFORMIN [Suspect]
     Active Substance: METFORMIN HYDROCHLORIDE
     Indication: Diabetes mellitus
     Dosage: 1500 MILLIGRAM, ONCE A DAY
     Route: 065
     Dates: start: 2023
  5. METFORMIN [Suspect]
     Active Substance: METFORMIN HYDROCHLORIDE
     Dosage: 3000 MILLIGRAM, ONCE A DAY
     Route: 065
     Dates: start: 2023
  6. PIOGLITAZONE [Suspect]
     Active Substance: PIOGLITAZONE
     Indication: Diabetes mellitus
     Dosage: 45 MILLIGRAM, ONCE A DAY
     Route: 065
     Dates: start: 2023
  7. PIOGLITAZONE [Suspect]
     Active Substance: PIOGLITAZONE
     Dosage: 30 MILLIGRAM, ONCE A DAY
     Route: 065
     Dates: start: 2023
  8. SAXAGLIPTIN [Suspect]
     Active Substance: SAXAGLIPTIN
     Indication: Diabetes mellitus
     Dosage: 5 MILLIGRAM, ONCE A DAY
     Route: 065
     Dates: start: 2023

REACTIONS (5)
  - Diabetes mellitus [Recovering/Resolving]
  - Hyperglycaemia [Recovering/Resolving]
  - Oedema peripheral [Recovered/Resolved]
  - Diarrhoea [Recovered/Resolved]
  - Drug ineffective [Unknown]

NARRATIVE: CASE EVENT DATE: 20230101
